FAERS Safety Report 10648202 (Version 1)
Quarter: 2014Q4

REPORT INFORMATION
  Report Type: Spontaneous
  Country: None (occurrence: None)
  Receive Date: 20141211
  Receipt Date: 20141211
  Transmission Date: 20150529
  Serious: Yes (Life-Threatening, Other)
  Sender: FDA-Public Use
  Company Number: None

PATIENT
  Age: 39 Year
  Sex: Female
  Weight: 90.72 kg

DRUGS (1)
  1. LATUDA [Suspect]
     Active Substance: LURASIDONE HYDROCHLORIDE
     Indication: BIPOLAR DISORDER
     Dosage: FOR BI-POLAR/MOOD
     Route: 048
     Dates: start: 20141018, end: 20141101

REACTIONS (7)
  - Suicidal behaviour [None]
  - Head titubation [None]
  - Aggression [None]
  - Narcolepsy [None]
  - Fatigue [None]
  - Irritability [None]
  - Memory impairment [None]

NARRATIVE: CASE EVENT DATE: 20141101
